FAERS Safety Report 4755705-X (Version None)
Quarter: 2005Q3

REPORT INFORMATION
  Report Type: 
  Country: None (occurrence: None)
  Receive Date: 20050830
  Receipt Date: 20050711
  Transmission Date: 20060218
  Serious: No
  Sender: FDA-Public Use
  Company Number: US-BRISTOL-MYERS SQUIBB COMPANY-13032073

PATIENT
  Sex: Female

DRUGS (1)
  1. ABILIFY [Suspect]
     Indication: MOOD ALTERED
     Dates: start: 20050630

REACTIONS (2)
  - MENTAL STATUS CHANGES [None]
  - SPEECH DISORDER [None]
